FAERS Safety Report 5664269-8 (Version None)
Quarter: 2008Q1

REPORT INFORMATION
  Report Type: 
  Country: None (occurrence: None)
  Receive Date: 20080314
  Receipt Date: 20080307
  Transmission Date: 20080703
  Serious: Yes (Hospitalization)
  Sender: FDA-Public Use
  Company Number: US-AVENTIS-200812280GDDC

PATIENT
  Age: 69 Year
  Sex: Male
  Weight: 73.03 kg

DRUGS (8)
  1. TAXOTERE [Suspect]
     Dosage: DOSE: UNK
     Route: 042
     Dates: start: 20080226, end: 20080226
  2. OXALIPLATIN [Suspect]
     Dosage: DOSE: UNK
     Dates: start: 20080226, end: 20080226
  3. FLUOROURACIL [Suspect]
     Dosage: DOSE: UNK
     Dates: start: 20080226, end: 20080226
  4. FLOMAX [Concomitant]
  5. LEVOTHYROXINE SODIUM [Concomitant]
     Dosage: DOSE: 100 MCG
  6. NEXIUM [Concomitant]
  7. DEXAMETHASONE TAB [Concomitant]
     Dosage: DOSE: 1 DAY BEFORE AND 1 DAY AFTER CHEMOTHERAPY
  8. ATIVAN [Concomitant]
     Dosage: DOSE: 0.5 MG Q6H

REACTIONS (2)
  - RENAL FAILURE [None]
  - THROMBOCYTOPENIA [None]
